FAERS Safety Report 5858751-8 (Version None)
Quarter: 2008Q3

REPORT INFORMATION
  Report Type: 
  Country: None (occurrence: None)
  Receive Date: 20080818
  Receipt Date: 20080716
  Transmission Date: 20090109
  Serious: No
  Sender: FDA-Public Use
  Company Number: WAES 0804USA01161

PATIENT
  Age: 70 Year
  Sex: Female
  Weight: 98.8842 kg

DRUGS (14)
  1. JANUVIA [Suspect]
     Indication: TYPE 2 DIABETES MELLITUS
     Dosage: PO
     Route: 048
  2. LIPITOR [Concomitant]
  3. MYLANTA [Concomitant]
  4. TYLENOL (CAPLET) [Concomitant]
  5. ASPIRIN [Concomitant]
  6. ATENOLOL [Concomitant]
  7. CALCIUM (UNSPECIFIED) [Concomitant]
  8. CHONDROITIN SULFATE SODIUM (+) [Concomitant]
  9. DILTIAZEM HYDROCHLORIDE [Concomitant]
  10. GLYBURIDE [Concomitant]
  11. LISINOPRIL [Concomitant]
  12. METFORMIN [Concomitant]
  13. METOPROLOL TARTRATE [Concomitant]
  14. VITAMINS (UNSPECIFIED) [Concomitant]

REACTIONS (5)
  - HEADACHE [None]
  - HEART RATE INCREASED [None]
  - HYPERHIDROSIS [None]
  - HYPERTENSION [None]
  - INSOMNIA [None]
